FAERS Safety Report 7401698-6 (Version None)
Quarter: 2011Q1

REPORT INFORMATION
  Report Type: 
  Country: None (occurrence: None)
  Receive Date: 20110329
  Receipt Date: 20110318
  Transmission Date: 20110831
  Serious: Yes (Hospitalization)
  Sender: FDA-Public Use
  Company Number: TAJPN-11-0214

PATIENT
  Age: 54 Year
  Sex: Female
  Weight: 39 kg

DRUGS (9)
  1. SANCOBA (CYANOCOBALAMIN) [Concomitant]
  2. CIPROFLOXACIN HCL [Concomitant]
  3. DECADRON [Suspect]
     Indication: ALLERGY PROPHYLAXIS
     Dosage: 8 MG, ORAL
     Route: 048
     Dates: start: 20110106, end: 20110224
  4. ZOMETA [Concomitant]
  5. HAYLEIN (HYALURONATE SODIUM) [Concomitant]
  6. AMOBANTES [Concomitant]
  7. GASMOTIN (MOSAPRIDE CITRATE) [Concomitant]
  8. ABRAXANE [Suspect]
     Indication: BREAST CANCER METASTATIC
     Dosage: 192 MG
     Dates: start: 20110106
  9. OLOPATADINE HYDROCHLORIDE [Concomitant]

REACTIONS (9)
  - RASH [None]
  - ASPARTATE AMINOTRANSFERASE INCREASED [None]
  - DEVICE RELATED INFECTION [None]
  - DIARRHOEA [None]
  - BLOOD LACTATE DEHYDROGENASE INCREASED [None]
  - WHITE BLOOD CELL COUNT DECREASED [None]
  - PYELONEPHRITIS ACUTE [None]
  - NEUTROPHIL COUNT DECREASED [None]
  - COUGH [None]
